FAERS Safety Report 4907776-5 (Version None)
Quarter: 2006Q1

REPORT INFORMATION
  Report Type: 
  Country: None (occurrence: None)
  Receive Date: 20060208
  Receipt Date: 20060208
  Transmission Date: 20060701
  Serious: No
  Sender: FDA-Public Use
  Company Number: None

PATIENT
  Age: 72 Year
  Sex: Male
  Weight: 270.3 kg

DRUGS (1)
  1. FELODIPINE [Suspect]
     Dosage: 2.5 MG DAILY PO
     Route: 048
     Dates: start: 20021201, end: 20060105

REACTIONS (1)
  - OEDEMA PERIPHERAL [None]
